FAERS Safety Report 8831405 (Version 3)
Quarter: 2013Q1

REPORT INFORMATION
  Report Type: Other
  Country: GB (occurrence: GB)
  Receive Date: 20121009
  Receipt Date: 20130122
  Transmission Date: 20140127
  Serious: Yes (Other)
  Sender: FDA-Public Use
  Company Number: GB-WATSON-2012-16849

PATIENT
  Sex: Male
  Weight: 80 kg

DRUGS (1)
  1. CIPROFLOXACIN HYDROCHLORIDE (UNKNOWN) [Suspect]
     Indication: PRODUCT USED FOR UNKNOWN INDICATION
     Dosage: 500 MG, UNKNOWN
     Route: 048
     Dates: start: 20120903, end: 20120910

REACTIONS (4)
  - Joint dislocation [Unknown]
  - Arthropathy [Recovering/Resolving]
  - Tendon pain [Unknown]
  - Pain in extremity [Unknown]
